FAERS Safety Report 14552219 (Version 1)
Quarter: 2018Q1

REPORT INFORMATION
  Report Type: Spontaneous
  Country: US (occurrence: US)
  Receive Date: 20180216
  Receipt Date: 20180216
  Transmission Date: 20180509
  Serious: Yes (Hospitalization)
  Sender: FDA-Public Use
  Company Number: None

PATIENT
  Age: 64 Year
  Sex: Male

DRUGS (10)
  1. DESCOVY [Suspect]
     Active Substance: EMTRICITABINE\TENOFOVIR ALAFENAMIDE FUMARATE
     Indication: HIV INFECTION
     Route: 048
     Dates: start: 20170627
  2. METOPROLOL TARTRATE. [Concomitant]
     Active Substance: METOPROLOL TARTRATE
  3. LOSARTAN. [Concomitant]
     Active Substance: LOSARTAN
  4. NIFEDIPINE. [Concomitant]
     Active Substance: NIFEDIPINE
  5. AMLODINE [Concomitant]
     Active Substance: AMLODIPINE BESYLATE
  6. INTELENCE [Concomitant]
     Active Substance: ETRAVIRINE
  7. ATORVASTATIN [Concomitant]
     Active Substance: ATORVASTATIN
  8. ASPIRIN. [Concomitant]
     Active Substance: ASPIRIN
  9. WARFARIN [Concomitant]
     Active Substance: WARFARIN
  10. ISENTRESS [Concomitant]
     Active Substance: RALTEGRAVIR POTASSIUM

REACTIONS (1)
  - Myocardial infarction [None]
